FAERS Safety Report 8448317-8 (Version None)
Quarter: 2012Q2

REPORT INFORMATION
  Report Type: 
  Country: None (occurrence: None)
  Receive Date: 20120619
  Receipt Date: 20120613
  Transmission Date: 20120825
  Serious: Yes (Other)
  Sender: FDA-Public Use
  Company Number: GB-ROCHE-1058680

PATIENT
  Sex: Female

DRUGS (8)
  1. CICLESONIDE [Concomitant]
  2. CITALOPRAM [Concomitant]
  3. PREDNISOLONE [Concomitant]
  4. XOLAIR [Suspect]
     Indication: ASTHMA
     Route: 058
  5. MONTELUKAST [Concomitant]
  6. FORMOTEROL FUMARATE [Concomitant]
  7. ALBUTEROL [Concomitant]
  8. OMEPRAZOLE [Concomitant]

REACTIONS (1)
  - ANGIOEDEMA [None]
